FAERS Safety Report 11969198 (Version 1)
Quarter: 2016Q1

REPORT INFORMATION
  Report Type: Report from Study
  Country: US (occurrence: US)
  Receive Date: 20160128
  Receipt Date: 20160128
  Transmission Date: 20160526
  Serious: No
  Sender: FDA-Public Use
  Company Number: PHEH2015US002704

PATIENT
  Sex: Female

DRUGS (2)
  1. TASIGNA [Suspect]
     Active Substance: NILOTINIB
     Indication: CHRONIC MYELOID LEUKAEMIA
  2. TASIGNA [Suspect]
     Active Substance: NILOTINIB
     Indication: WHITE BLOOD CELL DISORDER
     Dosage: 200 MG, BID
     Route: 048
     Dates: start: 20130826

REACTIONS (3)
  - Amnesia [Unknown]
  - Product use issue [Unknown]
  - Memory impairment [Unknown]
